FAERS Safety Report 8360643-X (Version None)
Quarter: 2012Q2

REPORT INFORMATION
  Report Type: 
  Country: None (occurrence: None)
  Receive Date: 20120514
  Receipt Date: 20120514
  Transmission Date: 20120825
  Serious: No
  Sender: FDA-Public Use
  Company Number: None

PATIENT
  Age: 63 Year
  Sex: Male

DRUGS (23)
  1. FERROUS SULFATE AND FOLIC ACID [Concomitant]
  2. MEROPENEM [Concomitant]
  3. CRESTOR [Suspect]
     Indication: ACUTE RESPIRATORY DISTRESS SYNDROME
     Dosage: 40 MG ORAL/PG ONE TIME
     Route: 048
     Dates: start: 20120419
  4. CRESTOR [Suspect]
     Indication: SEPSIS
     Dosage: 40 MG ORAL/PG ONE TIME
     Route: 048
     Dates: start: 20120419
  5. CASOFUNGIN [Concomitant]
  6. DIURIL [Concomitant]
  7. LEVOFLOXACIN [Concomitant]
  8. FLAGYL [Concomitant]
  9. DAPTOMUCIN [Concomitant]
  10. VASOPRESSIN [Concomitant]
  11. ALBUMIN (HUMAN) [Concomitant]
  12. ACID CITRATE DEXTROSE SOLUTION (FORMULA) A [Concomitant]
  13. PRECEDEX [Concomitant]
  14. NOREPINEPHRINE BITARTRATE [Concomitant]
  15. CRESTOR [Suspect]
     Indication: ACUTE RESPIRATORY DISTRESS SYNDROME
     Dosage: 20 MG ORAL/PG OD
     Route: 048
     Dates: start: 20120420, end: 20120430
  16. CRESTOR [Suspect]
     Indication: SEPSIS
     Dosage: 20 MG ORAL/PG OD
     Route: 048
     Dates: start: 20120420, end: 20120430
  17. AMIODARONE HCL [Concomitant]
  18. LEVLBUTEROL [Concomitant]
  19. VANCOMYCIN [Concomitant]
  20. ATROVENT [Concomitant]
  21. LACTULOSE [Concomitant]
  22. LINEZOLID [Concomitant]
  23. INSULIN [Concomitant]

REACTIONS (8)
  - RHABDOMYOLYSIS [None]
  - SPUTUM CULTURE POSITIVE [None]
  - HYPOTENSION [None]
  - REFRACTORY ANAEMIA [None]
  - KLEBSIELLA INFECTION [None]
  - BLOOD CULTURE POSITIVE [None]
  - DYSPNOEA [None]
  - OCCULT BLOOD POSITIVE [None]
